FAERS Safety Report 14033954 (Version 1)
Quarter: 2017Q4

REPORT INFORMATION
  Report Type: Spontaneous
  Country: JP (occurrence: JP)
  Receive Date: 20171003
  Receipt Date: 20171003
  Transmission Date: 20180321
  Serious: Yes (Hospitalization)
  Sender: FDA-Public Use
  Company Number: JP-NOVAST LABORATORIES, LTD-JP-2017NOV000064

PATIENT
  Age: 61 Year
  Sex: Male

DRUGS (2)
  1. ACETAZOLAMIDE. [Suspect]
     Active Substance: ACETAZOLAMIDE
     Indication: DIURETIC THERAPY
     Dosage: 500 MG DOSE (DAY 17 OF HOSPITALIZATION)
     Route: 042
  2. ACETAZOLAMIDE. [Suspect]
     Active Substance: ACETAZOLAMIDE
     Indication: METABOLIC ALKALOSIS
     Dosage: 500 MG DOSE, 5 DAYS AFTER PREVIOUS EPISODE

REACTIONS (1)
  - Non-cardiogenic pulmonary oedema [Recovered/Resolved]
